FAERS Safety Report 10241846 (Version 1)
Quarter: 2014Q2

REPORT INFORMATION
  Report Type: Spontaneous
  Country: US (occurrence: US)
  Receive Date: 20140617
  Receipt Date: 20140617
  Transmission Date: 20141212
  Serious: Yes (Hospitalization)
  Sender: FDA-Public Use
  Company Number: US-GLAXOSMITHKLINE-A1076595A

PATIENT
  Age: 46 Year
  Sex: Male

DRUGS (3)
  1. IMITREX [Suspect]
     Indication: CLUSTER HEADACHE
     Dosage: 6ML SEE DOSAGE TEXT
     Route: 058
     Dates: start: 2008
  2. SUMATRIPTAN SUCCINATE [Suspect]
     Indication: CLUSTER HEADACHE
     Dosage: 6ML SEE DOSAGE TEXT
     Route: 058
  3. MORPHINE [Concomitant]

REACTIONS (7)
  - Radiotherapy [Unknown]
  - Neurectomy [Unknown]
  - Seizure like phenomena [Not Recovered/Not Resolved]
  - Facial pain [Not Recovered/Not Resolved]
  - Malaise [Not Recovered/Not Resolved]
  - Off label use [Unknown]
  - Overdose [Not Recovered/Not Resolved]
